FAERS Safety Report 8386467-5 (Version None)
Quarter: 2012Q2

REPORT INFORMATION
  Report Type: 
  Country: None (occurrence: None)
  Receive Date: 20120525
  Receipt Date: 20120517
  Transmission Date: 20120825
  Serious: Yes (Other)
  Sender: FDA-Public Use
  Company Number: US-JNJFOC-20120515672

PATIENT
  Age: 24 Year
  Sex: Male

DRUGS (1)
  1. NUCYNTA [Suspect]
     Indication: PAIN
     Route: 065
     Dates: start: 20120501, end: 20120517

REACTIONS (1)
  - CONTUSION [None]
